FAERS Safety Report 4923899-9 (Version None)
Quarter: 2006Q1

REPORT INFORMATION
  Report Type: 
  Country: None (occurrence: None)
  Receive Date: 20060227
  Receipt Date: 20051005
  Transmission Date: 20060701
  Serious: Yes (Hospitalization, Disabling)
  Sender: FDA-Public Use
  Company Number: US-MERCK-0510USA05011

PATIENT
  Age: 44 Year
  Sex: Female
  Weight: 76 kg

DRUGS (27)
  1. METHYLPREDNISOLONE [Concomitant]
     Route: 065
     Dates: start: 20031013
  2. GENEXPECT DM [Concomitant]
     Route: 065
     Dates: start: 20030909
  3. NATALCARE RX [Concomitant]
     Route: 065
     Dates: start: 20030922
  4. MECLOFENAMATE SODIUM [Concomitant]
     Route: 065
     Dates: start: 20030909
  5. FOSAMAX [Concomitant]
     Route: 065
     Dates: start: 20040824
  6. FLUCONAZOLE [Concomitant]
     Route: 065
     Dates: start: 20040919
  7. PROTONIX [Concomitant]
     Route: 065
     Dates: start: 20030913
  8. ATROPINE SULFATE AND DIPHENOXYLATE HYDROCHLORIDE [Concomitant]
     Route: 065
     Dates: start: 20040924
  9. CEPHALEXIN [Concomitant]
     Route: 065
     Dates: start: 20040708
  10. CIPROFLOXACIN [Concomitant]
     Route: 065
     Dates: start: 20040913
  11. PATANOL [Concomitant]
     Route: 065
     Dates: start: 20031212
  12. PREMPRO [Concomitant]
     Route: 065
     Dates: start: 20031203
  13. PREDNISOLONE [Concomitant]
     Route: 065
     Dates: start: 20031212
  14. CEFADROXIL [Concomitant]
     Route: 065
     Dates: start: 20031117
  15. METOPROLOL [Concomitant]
     Route: 065
     Dates: start: 20031203
  16. ROBINUL [Concomitant]
     Route: 065
     Dates: start: 20031110
  17. ULTRACET [Concomitant]
     Route: 065
     Dates: start: 20031101
  18. VIOXX [Suspect]
     Indication: MYALGIA
     Route: 048
     Dates: start: 20011101, end: 20041101
  19. BEXTRA [Concomitant]
     Route: 065
  20. TYLENOL (CAPLET) [Concomitant]
     Indication: MYALGIA
     Route: 065
     Dates: start: 20031011
  21. TRAMADOLOR [Concomitant]
     Indication: MYALGIA
     Route: 065
     Dates: start: 20030101
  22. CLOTRIMAZOLE [Concomitant]
     Route: 065
     Dates: start: 20040913
  23. SYNTHROID [Concomitant]
     Route: 065
     Dates: start: 20040824
  24. EVISTA [Concomitant]
     Indication: MYALGIA
     Route: 065
     Dates: start: 20030101
  25. LEVAQUIN [Concomitant]
     Route: 065
     Dates: start: 20030730
  26. METRONIDAZOLE [Concomitant]
     Route: 065
     Dates: start: 20030730
  27. SKELAXIN [Concomitant]
     Route: 065
     Dates: start: 20031001

REACTIONS (26)
  - ABDOMINAL NEOPLASM [None]
  - ANGINA PECTORIS [None]
  - ARRHYTHMIA [None]
  - ARTERIOSCLEROSIS [None]
  - BLOOD TRIGLYCERIDES INCREASED [None]
  - CHRONIC FATIGUE SYNDROME [None]
  - CORONARY ARTERY DISEASE [None]
  - CRYING [None]
  - DEPRESSION [None]
  - DYSPEPSIA [None]
  - DYSPNOEA [None]
  - GLAUCOMA [None]
  - HAEMATOCHEZIA [None]
  - HEPATIC FUNCTION ABNORMAL [None]
  - HYPERTENSION [None]
  - INSOMNIA [None]
  - MYOCARDIAL INFARCTION [None]
  - NAUSEA [None]
  - OEDEMA PERIPHERAL [None]
  - OESOPHAGEAL DISORDER [None]
  - PANCREATITIS [None]
  - PANIC DISORDER [None]
  - RENAL DISORDER [None]
  - RHEUMATOID ARTHRITIS [None]
  - SLEEP APNOEA SYNDROME [None]
  - UTERINE DISORDER [None]
